FAERS Safety Report 21510080 (Version 1)
Quarter: 2022Q4

REPORT INFORMATION
  Report Type: Spontaneous
  Country: SK (occurrence: SK)
  Receive Date: 20221026
  Receipt Date: 20221026
  Transmission Date: 20230113
  Serious: Yes (Death, Hospitalization, Other)
  Sender: FDA-Public Use
  Company Number: SK-NOVARTISPH-NVSC2021SK213242

PATIENT
  Age: 56 Year
  Sex: Male

DRUGS (4)
  1. BORTEZOMIB [Suspect]
     Active Substance: BORTEZOMIB
     Indication: Plasma cell myeloma
     Dosage: UNK (COMBINED BORTEZOMIB, CYCLOPHOSPHAMIDE AND DEXAMETHASONE (CVD) REGIMEN)
     Route: 065
     Dates: start: 2020
  2. CYCLOPHOSPHAMIDE [Suspect]
     Active Substance: CYCLOPHOSPHAMIDE
     Indication: Plasma cell myeloma
     Dosage: UNK (COMBINED BORTEZOMIB, CYCLOPHOSPHAMIDE AND DEXAMETHASONE (CVD) REGIMEN)
     Route: 065
     Dates: start: 2020
  3. DEXAMETHASONE [Suspect]
     Active Substance: DEXAMETHASONE
     Indication: Plasma cell myeloma
     Dosage: UNK (COMBINED BORTEZOMIB, CYCLOPHOSPHAMIDE AND DEXAMETHASONE (CVD) REGIMEN)
     Route: 065
     Dates: start: 2020
  4. MIDODRINE HYDROCHLORIDE [Concomitant]
     Active Substance: MIDODRINE HYDROCHLORIDE
     Indication: Amyloidosis
     Dosage: UNK
     Route: 065

REACTIONS (18)
  - Septic shock [Fatal]
  - Azotaemia [Fatal]
  - Erysipelas [Fatal]
  - Haemorrhagic infarction [Fatal]
  - Gastrointestinal haemorrhage [Fatal]
  - Pneumonia [Fatal]
  - Fungal oesophagitis [Fatal]
  - Myelosuppression [Fatal]
  - Multiple organ dysfunction syndrome [Fatal]
  - Colitis [Fatal]
  - SARS-CoV-2 test positive [Fatal]
  - Infection [Unknown]
  - Immunodeficiency [Unknown]
  - Diverticulum intestinal haemorrhagic [Unknown]
  - Condition aggravated [Unknown]
  - Pneumonia klebsiella [Unknown]
  - Systemic candida [Unknown]
  - COVID-19 pneumonia [Unknown]

NARRATIVE: CASE EVENT DATE: 20200901
